FAERS Safety Report 9607427 (Version 1)
Quarter: 2013Q4

REPORT INFORMATION
  Report Type: Spontaneous
  Country: US (occurrence: None)
  Receive Date: 20131007
  Receipt Date: 20131007
  Transmission Date: 20140711
  Serious: Yes (Other)
  Sender: FDA-Public Use
  Company Number: 2013US-73593

PATIENT
  Age: 32 Year
  Sex: Male

DRUGS (3)
  1. PSEUDOEPHEDRINE [Suspect]
     Indication: HYPERSENSITIVITY
     Dosage: EVERY MORNING
  2. PSEUDOEPHEDRINE [Suspect]
     Dosage: EVERY MORNING
  3. LORATADINE (LORATADINE) UNKNOWN [Concomitant]

REACTIONS (4)
  - Depression [None]
  - Therapeutic response unexpected [None]
  - Disturbance in attention [None]
  - Increased appetite [None]
